FAERS Safety Report 4399658-5 (Version None)
Quarter: 2004Q3

REPORT INFORMATION
  Report Type: 
  Country: None (occurrence: None)
  Receive Date: 20040713
  Receipt Date: 20040629
  Transmission Date: 20050211
  Serious: Yes (Hospitalization)
  Sender: FDA-Public Use
  Company Number: FR-JNJFOC-20040404955

PATIENT
  Age: 53 Year
  Sex: Male
  Weight: 118 kg

DRUGS (5)
  1. REMICADE [Suspect]
     Indication: RHEUMATOID ARTHRITIS
     Dosage: 360 MG, INTRAVENOUS
     Route: 042
     Dates: start: 20040330
  2. PREDNISONE TAB [Concomitant]
  3. SPECIAFOLDINE (FOLIC ACID) TABLETS [Concomitant]
  4. METHOTREXATE [Concomitant]
  5. INEXIUM (ESOMEPRAZOLE) TABLETS [Concomitant]

REACTIONS (13)
  - BLOOD PH DECREASED [None]
  - CHILLS [None]
  - CONDITION AGGRAVATED [None]
  - CREPITATIONS [None]
  - DRUG INEFFECTIVE [None]
  - DYSPNOEA EXERTIONAL [None]
  - LEUKOCYTOSIS [None]
  - LUNG DISORDER [None]
  - LUNG INFECTION [None]
  - PCO2 INCREASED [None]
  - PO2 DECREASED [None]
  - PYREXIA [None]
  - RHEUMATOID ARTHRITIS [None]
